FAERS Safety Report 9361999 (Version 1)
Quarter: 2013Q2

REPORT INFORMATION
  Report Type: Spontaneous
  Country: US (occurrence: US)
  Receive Date: 20130621
  Receipt Date: 20130621
  Transmission Date: 20140414
  Serious: No
  Sender: FDA-Public Use
  Company Number: US-009507513-1306USA009553

PATIENT
  Age: 72 Year
  Sex: Female

DRUGS (1)
  1. DULERA [Suspect]
     Indication: PHARYNGEAL DISORDER
     Dosage: 100/5 MCG, BID
     Route: 055
     Dates: start: 20130617

REACTIONS (2)
  - Pain [Unknown]
  - Off label use [Unknown]
